FAERS Safety Report 17963670 (Version 4)
Quarter: 2022Q3

REPORT INFORMATION
  Report Type: Report from Study
  Country: CA (occurrence: CA)
  Receive Date: 20200630
  Receipt Date: 20220711
  Transmission Date: 20221027
  Serious: Yes (Hospitalization, Other)
  Sender: FDA-Public Use
  Company Number: CA-GLAXOSMITHKLINE-CA2020AMR109095

PATIENT

DRUGS (1)
  1. MEPOLIZUMAB [Suspect]
     Active Substance: MEPOLIZUMAB
     Indication: Asthma
     Dosage: 100 MG, Z (MONTHLY)
     Route: 042
     Dates: start: 20191203

REACTIONS (8)
  - Mobility decreased [Unknown]
  - Urinary incontinence [Unknown]
  - Dehydration [Unknown]
  - Atrial fibrillation [Unknown]
  - Palpitations [Unknown]
  - Jugular vein distension [Unknown]
  - Vein disorder [Unknown]
  - Full blood count abnormal [Unknown]
